FAERS Safety Report 8814165 (Version 1)
Quarter: 2012Q4

REPORT INFORMATION
  Report Type: Report from Study
  Country: CA (occurrence: CA)
  Receive Date: 20120928
  Receipt Date: 20120928
  Transmission Date: 20130627
  Serious: Yes (Hospitalization, Other)
  Sender: FDA-Public Use
  Company Number: CA-JNJFOC-20120810518

PATIENT
  Age: 55 Year
  Sex: Male
  Weight: 84.4 kg

DRUGS (11)
  1. REMICADE [Suspect]
     Indication: CROHN^S DISEASE
     Dosage: 32nd infusion
     Route: 042
     Dates: start: 20120918
  2. REMICADE [Suspect]
     Indication: CROHN^S DISEASE
     Route: 042
     Dates: start: 20070726
  3. AN UNKNOWN MEDICATION [Suspect]
     Indication: PRODUCT USED FOR UNKNOWN INDICATION
     Route: 065
  4. CALCIUM [Concomitant]
     Route: 065
  5. VITAMIN D [Concomitant]
     Route: 065
  6. MULTIVITAMINS [Concomitant]
     Route: 065
  7. 6 MERCAPTOPURINE [Concomitant]
     Route: 065
  8. FOSAMAX [Concomitant]
     Route: 065
  9. CIPRALEX [Concomitant]
     Route: 065
  10. OLANZAPINE [Concomitant]
     Route: 065
  11. MIRTAZAPINE [Concomitant]
     Route: 065

REACTIONS (4)
  - Skin infection [Unknown]
  - Cellulitis [Recovered/Resolved]
  - Weight increased [Unknown]
  - Depression [Unknown]
